FAERS Safety Report 18808609 (Version 4)
Quarter: 2021Q1

REPORT INFORMATION
  Report Type: Spontaneous
  Country: US (occurrence: US)
  Receive Date: 20210129
  Receipt Date: 20210326
  Transmission Date: 20210419
  Serious: Yes (Other)
  Sender: FDA-Public Use
  Company Number: US-NOVOPROD-781783

PATIENT
  Age: 44 Year
  Sex: Female

DRUGS (5)
  1. GLIPIZIDE. [Concomitant]
     Active Substance: GLIPIZIDE
     Indication: DIABETES MELLITUS INADEQUATE CONTROL
     Dosage: UNK
     Route: 065
  2. TRESIBA [Suspect]
     Active Substance: INSULIN DEGLUDEC
     Dosage: UNK (NEW BATCH)
     Route: 058
     Dates: start: 202101
  3. TRESIBA [Suspect]
     Active Substance: INSULIN DEGLUDEC
     Indication: DIABETES MELLITUS INADEQUATE CONTROL
     Dosage: 70?80 UNITS QD
     Route: 058
     Dates: start: 202003
  4. METFORMIN [Concomitant]
     Active Substance: METFORMIN HYDROCHLORIDE
     Indication: DIABETES MELLITUS INADEQUATE CONTROL
     Dosage: UNK
     Route: 065
  5. TRESIBA [Suspect]
     Active Substance: INSULIN DEGLUDEC
     Dosage: UNK (ANOTHER BATCH)
     Route: 058
     Dates: start: 20210116

REACTIONS (3)
  - Diabetic ketoacidosis [Recovered/Resolved]
  - Product quality issue [Recovered/Resolved]
  - Chronic sinusitis [Unknown]

NARRATIVE: CASE EVENT DATE: 202101
